FAERS Safety Report 5288506-7 (Version None)
Quarter: 2007Q2

REPORT INFORMATION
  Report Type: 
  Country: None (occurrence: None)
  Receive Date: 20070405
  Receipt Date: 20070209
  Transmission Date: 20071010
  Serious: No
  Sender: FDA-Public Use
  Company Number: US-JNJFOC-20070202984

PATIENT
  Sex: Male

DRUGS (3)
  1. INVEGA [Suspect]
     Indication: SCHIZOPHRENIA
     Route: 048
  2. XYPREXA [Concomitant]
  3. LORAZEPAM [Concomitant]

REACTIONS (3)
  - EX-SMOKER [None]
  - INSOMNIA [None]
  - SMOKER [None]
